FAERS Safety Report 7800035-2 (Version None)
Quarter: 2011Q4

REPORT INFORMATION
  Report Type: 
  Country: None (occurrence: None)
  Receive Date: 20111004
  Receipt Date: 20110914
  Transmission Date: 20120403
  Serious: Yes (Other)
  Sender: FDA-Public Use
  Company Number: DSA_47697_2011

PATIENT
  Age: 61 Year
  Sex: Male
  Weight: 105.2 kg

DRUGS (11)
  1. ASPIRIN [Concomitant]
  2. EZETIMIBE [Concomitant]
  3. TESTOSTERONE [Concomitant]
  4. ATENOLOL [Concomitant]
  5. DILTIAZEM HCL [Suspect]
     Indication: ATRIAL FIBRILLATION
     Dosage: 240 MG DAILY ORAL 9ABOUT 5 YEARS)
     Route: 048
  6. DILTIAZEM HCL [Suspect]
     Indication: SUPRAVENTRICULAR TACHYCARDIA
     Dosage: 240 MG DAILY ORAL 9ABOUT 5 YEARS)
     Route: 048
  7. ATORVASTATIN [Suspect]
     Indication: SUPRAVENTRICULAR TACHYCARDIA
     Dosage: 40 MG DAILY ORAL
     Route: 048
  8. ATORVASTATIN [Suspect]
     Indication: ATRIAL FIBRILLATION
     Dosage: 40 MG DAILY ORAL
     Route: 048
  9. CITALOPRAM HYDROBROMIDE [Suspect]
     Indication: PRODUCT USED FOR UNKNOWN INDICATION
     Dosage: 10 MG DAILY ORAL
     Route: 048
  10. SIMVASTATIN [Concomitant]
  11. PANTOPRAZOLE [Concomitant]

REACTIONS (10)
  - SERUM FERRITIN DECREASED [None]
  - GAIT DISTURBANCE [None]
  - MYOCLONUS [None]
  - IRON BINDING CAPACITY TOTAL INCREASED [None]
  - TRANSFERRIN SATURATION DECREASED [None]
  - HICCUPS [None]
  - EXAGGERATED STARTLE RESPONSE [None]
  - SLEEP APNOEA SYNDROME [None]
  - HYPERACUSIS [None]
  - DYSKINESIA [None]
